FAERS Safety Report 4630623-6 (Version None)
Quarter: 2005Q2

REPORT INFORMATION
  Report Type: 
  Country: None (occurrence: None)
  Receive Date: 20050408
  Receipt Date: 20050330
  Transmission Date: 20051028
  Serious: Yes (Hospitalization, Disabling, Other)
  Sender: FDA-Public Use
  Company Number: NO-BRISTOL-MYERS SQUIBB COMPANY-12914404

PATIENT
  Age: 56 Year
  Sex: Female

DRUGS (5)
  1. CISPLATIN [Suspect]
     Indication: ANAL CANCER METASTATIC
     Dates: start: 20040714
  2. FLUOROURACIL [Suspect]
     Indication: ANAL CANCER METASTATIC
     Dates: start: 20040714, end: 20040718
  3. ONDANSETRON [Concomitant]
     Dates: start: 20040714, end: 20040714
  4. DEXAMETHASONE [Concomitant]
     Dates: start: 20040714, end: 20040715
  5. METOCLOPRAMIDE [Concomitant]
     Dates: start: 20040716, end: 20040716

REACTIONS (3)
  - BLOOD CREATININE INCREASED [None]
  - CEREBRAL INFARCTION [None]
  - FALL [None]
